FAERS Safety Report 5859702-2 (Version None)
Quarter: 2008Q3

REPORT INFORMATION
  Report Type: 
  Country: None (occurrence: None)
  Receive Date: 20080827
  Receipt Date: 20080826
  Transmission Date: 20090109
  Serious: Yes (Hospitalization)
  Sender: FDA-Public Use
  Company Number: US-BRISTOL-MYERS SQUIBB COMPANY-14248207

PATIENT
  Age: 39 Year
  Sex: Male

DRUGS (2)
  1. DEFINITY [Suspect]
     Indication: STRESS ECHOCARDIOGRAM
     Route: 042
     Dates: start: 20080701
  2. PROTONIX [Concomitant]

REACTIONS (3)
  - LOCALISED OEDEMA [None]
  - PHARYNGEAL OEDEMA [None]
  - RASH [None]
